FAERS Safety Report 26010808 (Version 1)
Quarter: 2025Q4

REPORT INFORMATION
  Report Type: Spontaneous
  Country: US (occurrence: US)
  Receive Date: 20251107
  Receipt Date: 20251107
  Transmission Date: 20260117
  Serious: Yes (Life-Threatening, Hospitalization)
  Sender: BAUSCH AND LOMB
  Company Number: US-BAUSCH-BH-2025-019732

PATIENT
  Age: 61 Year
  Sex: Male

DRUGS (7)
  1. PYRIDOSTIGMINE [Suspect]
     Active Substance: PYRIDOSTIGMINE
     Indication: Product used for unknown indication
     Route: 065
  2. DEXAMETHASONE [Concomitant]
     Active Substance: DEXAMETHASONE
     Indication: Myasthenia gravis
  3. WARFARIN [Concomitant]
     Active Substance: WARFARIN
     Indication: Deep vein thrombosis
  4. NIVOLUMAB [Concomitant]
     Active Substance: NIVOLUMAB
     Indication: Lymphadenopathy
  5. NIVOLUMAB [Concomitant]
     Active Substance: NIVOLUMAB
     Indication: Gout
  6. NIVOLUMAB [Concomitant]
     Active Substance: NIVOLUMAB
     Indication: Arthritis
  7. IPILIMUMAB [Concomitant]
     Active Substance: IPILIMUMAB
     Indication: Malignant melanoma
     Dosage: 2 CYCLES OF NEOADJUVANT

REACTIONS (3)
  - Respiratory distress [Unknown]
  - Diarrhoea [Unknown]
  - Asthenia [Unknown]
